FAERS Safety Report 7705774-X (Version None)
Quarter: 2011Q3

REPORT INFORMATION
  Report Type: 
  Country: None (occurrence: None)
  Receive Date: 20110824
  Receipt Date: 20110824
  Transmission Date: 20111222
  Serious: No
  Sender: FDA-Public Use
  Company Number: None

PATIENT
  Age: 53 Year
  Sex: Male
  Weight: 80 kg

DRUGS (2)
  1. HEPARIN SODIUM INJECTION [Concomitant]
     Dosage: VARIOUS
     Dates: start: 20110817, end: 20110817
  2. HEPARIN SODIUM INJECTION [Suspect]
     Indication: ATRIAL FIBRILLATION
     Dosage: 27,000 UNITS
     Route: 040
     Dates: start: 20110722, end: 20110722

REACTIONS (1)
  - PRODUCT QUALITY ISSUE [None]
